FAERS Safety Report 9698109 (Version 1)
Quarter: 2013Q4

REPORT INFORMATION
  Report Type: Spontaneous
  Country: US (occurrence: US)
  Receive Date: 20131120
  Receipt Date: 20131120
  Transmission Date: 20140711
  Serious: No
  Sender: FDA-Public Use
  Company Number: US-PFIZER INC-2013330392

PATIENT
  Age: 76 Year
  Sex: Female

DRUGS (4)
  1. ATORVASTATIN CALCIUM [Suspect]
     Indication: BLOOD CHOLESTEROL INCREASED
     Dosage: 40 MG, ONCE A DAY
     Route: 048
     Dates: start: 20130820, end: 2013
  2. ATORVASTATIN CALCIUM [Suspect]
     Dosage: 60 MG, ONCE A DAY
     Route: 048
     Dates: start: 2013, end: 2013
  3. TOPROL XL [Concomitant]
     Dosage: 50 MG, UNK
  4. CLOPIDOGREL [Concomitant]
     Dosage: 75 MG, UNK

REACTIONS (1)
  - Myalgia [Recovering/Resolving]
